FAERS Safety Report 21533836 (Version 2)
Quarter: 2022Q4

REPORT INFORMATION
  Report Type: Report from Study
  Country: DE (occurrence: DE)
  Receive Date: 20221101
  Receipt Date: 20221129
  Transmission Date: 20230113
  Serious: Yes (Other)
  Sender: FDA-Public Use
  Company Number: DE-BAYER-2022A149788

PATIENT
  Age: 74 Year
  Sex: Female

DRUGS (36)
  1. EYLEA [Suspect]
     Active Substance: AFLIBERCEPT
     Indication: Neovascular age-related macular degeneration
     Dosage: 50 UL, ONCE; SOLUTION FOR INJECTION
     Dates: start: 20200717, end: 20200717
  2. EYLEA [Suspect]
     Active Substance: AFLIBERCEPT
     Dosage: 50 UL, ONCE; SOLUTION FOR INJECTION
     Route: 031
     Dates: start: 20200814, end: 20200814
  3. EYLEA [Suspect]
     Active Substance: AFLIBERCEPT
     Dosage: 50 UL, ONCE; SOLUTION FOR INJECTION
     Route: 031
     Dates: start: 20200911, end: 20200911
  4. EYLEA [Suspect]
     Active Substance: AFLIBERCEPT
     Dosage: 50 UL, ONCE; SOLUTION FOR INJECTION
     Route: 031
     Dates: start: 20201012, end: 20201012
  5. EYLEA [Suspect]
     Active Substance: AFLIBERCEPT
     Dosage: 50 UL, ONCE; SOLUTION FOR INJECTION
     Route: 031
     Dates: start: 20201116, end: 20201116
  6. EYLEA [Suspect]
     Active Substance: AFLIBERCEPT
     Dosage: 50 UL, ONCE; SOLUTION FOR INJECTION
     Route: 031
     Dates: start: 20201214, end: 20201214
  7. EYLEA [Suspect]
     Active Substance: AFLIBERCEPT
     Dosage: 50 UL, ONCE; SOLUTION FOR INJECTION
     Route: 031
     Dates: start: 20210111, end: 20210111
  8. EYLEA [Suspect]
     Active Substance: AFLIBERCEPT
     Dosage: 50 UL, ONCE; SOLUTION FOR INJECTION
     Route: 031
     Dates: start: 20210111, end: 20210111
  9. EYLEA [Suspect]
     Active Substance: AFLIBERCEPT
     Dosage: 50 UL, ONCE; SOLUTION FOR INJECTION
     Route: 031
     Dates: start: 20210215, end: 20210215
  10. EYLEA [Suspect]
     Active Substance: AFLIBERCEPT
     Dosage: 50 UL, ONCE; SOLUTION FOR INJECTION
     Route: 031
     Dates: start: 20210322, end: 20210322
  11. EYLEA [Suspect]
     Active Substance: AFLIBERCEPT
     Dosage: 50 UL, ONCE; SOLUTION FOR INJECTION
     Route: 031
     Dates: start: 20210419, end: 20210419
  12. EYLEA [Suspect]
     Active Substance: AFLIBERCEPT
     Dosage: 50 UL, ONCE; SOLUTION FOR INJECTION
     Route: 031
     Dates: start: 20210531, end: 20210531
  13. EYLEA [Suspect]
     Active Substance: AFLIBERCEPT
     Dosage: 50 UL, ONCE; SOLUTION FOR INJECTION
     Route: 031
     Dates: start: 20210628, end: 20210628
  14. EYLEA [Suspect]
     Active Substance: AFLIBERCEPT
     Dosage: 50 UL, ONCE; SOLUTION FOR INJECTION
     Route: 031
     Dates: start: 20210726, end: 20210726
  15. EYLEA [Suspect]
     Active Substance: AFLIBERCEPT
     Dosage: 50 UL, ONCE; SOLUTION FOR INJECTION
     Route: 031
     Dates: start: 20210823, end: 20210823
  16. EYLEA [Suspect]
     Active Substance: AFLIBERCEPT
     Dosage: 50 UL, ONCE; SOLUTION FOR INJECTION
     Route: 031
     Dates: start: 20210920, end: 20210920
  17. EYLEA [Suspect]
     Active Substance: AFLIBERCEPT
     Dosage: 50 UL, ONCE; SOLUTION FOR INJECTION
     Route: 031
     Dates: start: 20211022, end: 20211022
  18. EYLEA [Suspect]
     Active Substance: AFLIBERCEPT
     Dosage: 50 UL, ONCE; SOLUTION FOR INJECTION
     Route: 031
     Dates: start: 20211119, end: 20211119
  19. EYLEA [Suspect]
     Active Substance: AFLIBERCEPT
     Dosage: 50 UL, ONCE; SOLUTION FOR INJECTION
     Route: 031
     Dates: start: 20211217, end: 20211217
  20. EYLEA [Suspect]
     Active Substance: AFLIBERCEPT
     Dosage: 50 UL, ONCE; SOLUTION FOR INJECTION
     Route: 031
     Dates: start: 20220114, end: 20220114
  21. EYLEA [Suspect]
     Active Substance: AFLIBERCEPT
     Dosage: 50 UL, ONCE; SOLUTION FOR INJECTION
     Route: 031
     Dates: start: 20220311, end: 20220311
  22. EYLEA [Suspect]
     Active Substance: AFLIBERCEPT
     Dosage: 50 UL, ONCE; SOLUTION FOR INJECTION
     Route: 031
     Dates: start: 20220408, end: 20220408
  23. EYLEA [Suspect]
     Active Substance: AFLIBERCEPT
     Dosage: 50 UL, ONCE; SOLUTION FOR INJECTION
     Route: 031
     Dates: start: 20220603, end: 20220603
  24. EYLEA [Suspect]
     Active Substance: AFLIBERCEPT
     Dosage: 50 UL, ONCE; SOLUTION FOR INJECTION
     Route: 031
     Dates: start: 20220701, end: 20220701
  25. EYLEA [Suspect]
     Active Substance: AFLIBERCEPT
     Dosage: 50 UL, ONCE; SOLUTION FOR INJECTION
     Route: 031
     Dates: start: 20220729, end: 20220729
  26. METOPROLOL TARTRATE [Concomitant]
     Active Substance: METOPROLOL TARTRATE
     Indication: Product used for unknown indication
     Dosage: UNK UNK, QD
     Route: 048
     Dates: start: 2018
  27. PANTOPRAZOLE [Concomitant]
     Active Substance: PANTOPRAZOLE
     Indication: Product used for unknown indication
     Dosage: UNK UNK, QD
     Route: 048
     Dates: start: 2018
  28. LOSARTAN [Concomitant]
     Active Substance: LOSARTAN
     Indication: Product used for unknown indication
     Dosage: UNK UNK, QD
     Route: 061
     Dates: start: 2018
  29. MAXITROL [Concomitant]
     Active Substance: DEXAMETHASONE\NEOMYCIN SULFATE\POLYMYXIN B SULFATE
     Indication: Product used for unknown indication
     Dosage: UNK UNK, PRN
     Dates: start: 20200814
  30. DEXAMETHASONE\NEOMYCIN SULFATE\POLYMYXIN B SULFATE [Concomitant]
     Active Substance: DEXAMETHASONE\NEOMYCIN SULFATE\POLYMYXIN B SULFATE
     Indication: Product used for unknown indication
     Dosage: UNK UNK, QD
     Dates: start: 20200817, end: 20200819
  31. DEXA GENTAMYCIN [Concomitant]
     Indication: Product used for unknown indication
     Dosage: 1 DROP, QID
     Route: 061
     Dates: start: 20200510, end: 20200512
  32. PRED FORTE [Concomitant]
     Active Substance: PREDNISOLONE ACETATE
     Indication: Product used for unknown indication
     Dosage: EVERY 2 HOURS 1 DROP
     Route: 061
     Dates: start: 20220607, end: 20220608
  33. PRED FORTE [Concomitant]
     Active Substance: PREDNISOLONE ACETATE
     Dosage: 1 DROP 5-6 TIMES A DAY
     Route: 061
     Dates: start: 20220609
  34. PRED FORTE [Concomitant]
     Active Substance: PREDNISOLONE ACETATE
     Dosage: 3 X DAILY ONE DROP UNTIL BOTTLE IS EMPTY
     Route: 061
     Dates: start: 20220628
  35. PRED FORTE [Concomitant]
     Active Substance: PREDNISOLONE ACETATE
     Dosage: 5X DAILY 1 DROP LEFT EYE
     Route: 061
     Dates: start: 20220613
  36. PREDNI OPHTAL [Concomitant]
     Indication: Product used for unknown indication
     Dosage: 1 CM LONG STROKE AT NIGHT
     Route: 061
     Dates: start: 20220607, end: 20220628

REACTIONS (1)
  - Ocular vasculitis [Recovering/Resolving]

NARRATIVE: CASE EVENT DATE: 20220728
